FAERS Safety Report 25950685 (Version 1)
Quarter: 2025Q4

REPORT INFORMATION
  Report Type: Spontaneous
  Country: JP (occurrence: JP)
  Receive Date: 20251023
  Receipt Date: 20251023
  Transmission Date: 20260117
  Serious: Yes (Death)
  Sender: MERCK SHARP & DOHME LLC
  Company Number: JP-009507513-2342394

PATIENT
  Age: 8 Decade
  Sex: Male

DRUGS (5)
  1. KEYTRUDA [Suspect]
     Active Substance: PEMBROLIZUMAB
     Indication: Gastric cancer stage IV
     Route: 041
     Dates: start: 202507, end: 202510
  2. HERCEPTIN [Concomitant]
     Active Substance: TRASTUZUMAB
     Route: 041
     Dates: start: 202506, end: 2025
  3. HERCEPTIN [Concomitant]
     Active Substance: TRASTUZUMAB
     Route: 041
     Dates: start: 2025, end: 202510
  4. OXALIPLATIN [Concomitant]
     Active Substance: OXALIPLATIN
     Route: 041
     Dates: start: 202506, end: 202510
  5. TS-1 [Concomitant]
     Active Substance: GIMERACIL\OTERACIL POTASSIUM\TEGAFUR
     Route: 048
     Dates: start: 202506, end: 202510

REACTIONS (1)
  - Interstitial lung disease [Fatal]

NARRATIVE: CASE EVENT DATE: 20251019
